FAERS Safety Report 5345598-4 (Version None)
Quarter: 2007Q2

REPORT INFORMATION
  Report Type: 
  Country: None (occurrence: None)
  Receive Date: 20070605
  Receipt Date: 20070124
  Transmission Date: 20071010
  Serious: No
  Sender: FDA-Public Use
  Company Number: US-ASTRAZENECA-2007UW01424

PATIENT
  Age: 77 Year
  Sex: Male

DRUGS (11)
  1. PRILOSEC [Suspect]
     Indication: DYSPEPSIA
     Route: 048
  2. XOPENEX [Suspect]
     Indication: DYSPNOEA
     Dosage: 1.25 MG/3ML QD INHALATION
     Route: 055
     Dates: start: 20060101
  3. XOPENEX [Suspect]
     Dosage: 1.25 MG/3ML BID INHALATION
     Route: 055
     Dates: start: 20060801
  4. ZOLOFT [Suspect]
     Indication: DEPRESSION
     Route: 048
  5. CARBIDOPA [Concomitant]
  6. LEVODOPA [Concomitant]
  7. ENTACAPONE [Concomitant]
  8. LORAZEPAM [Concomitant]
  9. FORTICOL [Concomitant]
  10. ADVAIR DISKUS 100/50 [Concomitant]
  11. MIRTAZAPINE [Concomitant]

REACTIONS (3)
  - CHILLS [None]
  - HEART RATE INCREASED [None]
  - HYPERHIDROSIS [None]
